FAERS Safety Report 11543921 (Version 1)
Quarter: 2015Q3

REPORT INFORMATION
  Report Type: Report from Study
  Country: DE (occurrence: DE)
  Receive Date: 20150924
  Receipt Date: 20150924
  Transmission Date: 20151125
  Serious: Yes (Other)
  Sender: FDA-Public Use
  Company Number: DE-ROCHE-1635390

PATIENT
  Age: 43 Year

DRUGS (10)
  1. LAMIVUDINE. [Concomitant]
     Active Substance: LAMIVUDINE
  2. SAQUINAVIR [Concomitant]
     Active Substance: SAQUINAVIR
     Route: 065
  3. MYCOPHENOLATE MOFETIL. [Concomitant]
     Active Substance: MYCOPHENOLATE MOFETIL
     Route: 065
  4. PEG-INTERFERON ALFA 2A [Suspect]
     Active Substance: PEGINTERFERON ALFA-2A
     Indication: HEPATITIS C
     Route: 065
  5. PREDNISOLONE. [Concomitant]
     Active Substance: PREDNISOLONE
     Route: 065
  6. CYCLOSPORINE A [Concomitant]
     Active Substance: CYCLOSPORINE
     Route: 065
  7. EVEROLIMUS [Concomitant]
     Active Substance: EVEROLIMUS
  8. LOPINAVIR [Concomitant]
     Active Substance: LOPINAVIR
  9. RIBAVIRIN. [Suspect]
     Active Substance: RIBAVIRIN
     Indication: HEPATITIS C
     Route: 065
  10. RITONAVIR. [Concomitant]
     Active Substance: RITONAVIR

REACTIONS (1)
  - Venous thrombosis [Unknown]
